FAERS Safety Report 20637592 (Version 1)
Quarter: 2022Q1

REPORT INFORMATION
  Report Type: Spontaneous
  Country: HR (occurrence: None)
  Receive Date: 20220325
  Receipt Date: 20220325
  Transmission Date: 20220424
  Serious: Yes (Other)
  Sender: FDA-Public Use
  Company Number: 2022A118019

PATIENT
  Age: 41 Year
  Sex: Male

DRUGS (3)
  1. SEROQUEL [Suspect]
     Active Substance: QUETIAPINE FUMARATE
     Dosage: 1 DF = 1 TBL
     Route: 048
     Dates: start: 20210928, end: 20210928
  2. LYRICA [Suspect]
     Active Substance: PREGABALIN
     Dosage: 1 DF = 1 TBL
     Route: 048
     Dates: start: 20210928, end: 20210928
  3. METHADONE [Concomitant]
     Active Substance: METHADONE HYDROCHLORIDE
     Dosage: 1 DF = 1 TBL, IN THE MORNING
     Route: 048
     Dates: start: 20210929, end: 20210929

REACTIONS (2)
  - Respiratory depression [Unknown]
  - Drug abuse [Unknown]

NARRATIVE: CASE EVENT DATE: 20210901
